FAERS Safety Report 14023392 (Version 1)
Quarter: 2017Q3

REPORT INFORMATION
  Report Type: Spontaneous
  Country: US (occurrence: US)
  Receive Date: 20170928
  Receipt Date: 20170928
  Transmission Date: 20171128
  Serious: No
  Sender: FDA-Public Use
  Company Number: US-SA-2016SA207721

PATIENT
  Sex: Female

DRUGS (4)
  1. BACLOFEN. [Concomitant]
     Active Substance: BACLOFEN
  2. AUBAGIO [Suspect]
     Active Substance: TERIFLUNOMIDE
     Indication: MULTIPLE SCLEROSIS
     Route: 065
  3. TRIMETHOPRIM/SULFAMETHOXAZOLE [Concomitant]
  4. ESTRACE [Concomitant]
     Active Substance: ESTRADIOL

REACTIONS (1)
  - White blood cell count decreased [Not Recovered/Not Resolved]
